FAERS Safety Report 8047561-1 (Version None)
Quarter: 2012Q1

REPORT INFORMATION
  Report Type: 
  Country: None (occurrence: None)
  Receive Date: 20120116
  Receipt Date: 20120105
  Transmission Date: 20120608
  Serious: Yes (Death, Hospitalization)
  Sender: FDA-Public Use
  Company Number: US-GLAXOSMITHKLINE-A0918189A

PATIENT
  Age: 73 Year
  Sex: Male
  Weight: 104.5 kg

DRUGS (9)
  1. AVANDIA [Suspect]
     Indication: DIABETES MELLITUS
     Dosage: 4MG PER DAY
     Route: 048
     Dates: start: 20010123, end: 20090315
  2. GLIPIZIDE [Concomitant]
  3. PAROXETINE [Concomitant]
  4. ZOCOR [Concomitant]
  5. INSULIN [Concomitant]
  6. THEOPHYLLINE [Concomitant]
  7. PRILOSEC [Concomitant]
  8. METOPROLOL TARTRATE [Concomitant]
  9. XOPENEX [Concomitant]

REACTIONS (5)
  - MYOCARDIAL INFARCTION [None]
  - TRANSIENT ISCHAEMIC ATTACK [None]
  - CARDIAC FAILURE CONGESTIVE [None]
  - DEATH [None]
  - CARDIOVASCULAR DISORDER [None]
